FAERS Safety Report 5148962-1 (Version None)
Quarter: 2006Q4

REPORT INFORMATION
  Report Type: 
  Country: None (occurrence: None)
  Receive Date: 20061113
  Receipt Date: 20061102
  Transmission Date: 20070319
  Serious: Yes (Other)
  Sender: FDA-Public Use
  Company Number: GB-AVENTIS-200621418GDDC

PATIENT
  Age: 18 Year
  Sex: Female

DRUGS (2)
  1. METRONIDAZOLE [Suspect]
     Indication: PYREXIA
  2. CEFUROXIME AXETIL [Suspect]
     Indication: PYREXIA

REACTIONS (6)
  - ABORTION SPONTANEOUS [None]
  - ACUTE RESPIRATORY DISTRESS SYNDROME [None]
  - POST PROCEDURAL COMPLICATION [None]
  - PREGNANCY TEST URINE NEGATIVE [None]
  - PREGNANCY TEST URINE POSITIVE [None]
  - VAGINAL HAEMORRHAGE [None]
